FAERS Safety Report 8614634-1 (Version None)
Quarter: 2012Q3

REPORT INFORMATION
  Report Type: 
  Country: None (occurrence: None)
  Receive Date: 20120823
  Receipt Date: 20120822
  Transmission Date: 20120928
  Serious: Yes (Hospitalization, Other)
  Sender: FDA-Public Use
  Company Number: PHEH2009US13607

PATIENT
  Sex: Male

DRUGS (41)
  1. KETOCONAZOLE [Concomitant]
     Dosage: 200 MG, TID2SDO
  2. SEROQUEL [Concomitant]
     Dosage: 50 MG, TID
  3. MIDAZOLAM [Concomitant]
     Indication: ANXIETY
  4. TIMOLOL MALEATE [Concomitant]
  5. INFLUENZA VACCINE [Concomitant]
     Dates: start: 20100101
  6. NORPACE [Concomitant]
     Dosage: 200 MG, TID
  7. COLACE [Concomitant]
     Dosage: 100 MG, BID
     Route: 048
  8. TYLENOL [Concomitant]
     Dosage: 650 MG, Q4H PRN
     Route: 048
  9. LATANOPROST [Concomitant]
  10. MECLIZINE [Concomitant]
     Dosage: 50 MG, QID
  11. XANAX [Concomitant]
     Dosage: 0.25 MG, TID
  12. VASOTEC [Concomitant]
     Dosage: 10 MG, QD
  13. FLUTICASONE PROPIONATE/SALMETEROL [Concomitant]
  14. PAXIL [Concomitant]
     Dosage: 25 MG, BID
  15. PAROXETINE [Concomitant]
     Dosage: 15 MG, BID
  16. CORTEF [Concomitant]
     Dosage: 5 MG, UNK
  17. REMERON [Concomitant]
     Dosage: 30 MG, QD
  18. MIRTAZAPINE [Concomitant]
     Dosage: 30 MG, UNK
  19. TRIAMCINOLONE [Concomitant]
  20. TIOTROPIUM [Concomitant]
  21. DARVOCET-N 50 [Concomitant]
  22. ALBUTEROL [Concomitant]
  23. PNEUMOVAX 23 [Concomitant]
     Dosage: 0.5 ML, UNK
     Dates: start: 19991227
  24. TETANUS VACCINE [Concomitant]
     Dates: start: 19990406
  25. LOTENSIN [Concomitant]
     Dosage: 10 MG, QD
  26. IRON [Concomitant]
     Dosage: 325 MG, QD
     Route: 048
  27. SIMVASTATIN [Concomitant]
     Dosage: 80 MG, QD
  28. SPIRIVA [Concomitant]
  29. VITAMIN D [Concomitant]
     Dosage: 1000 IU, UNK
  30. ENALAPRIL MALEATE [Concomitant]
     Dosage: 10 MG, UNK
  31. MOMETASONE FUROATE [Concomitant]
  32. PILOSTAT [Concomitant]
  33. ZOMETA [Suspect]
     Indication: METASTASES TO CENTRAL NERVOUS SYSTEM
     Dosage: 3.5 MG, QMO
     Dates: start: 20040101, end: 20080501
  34. CLEOCIN HYDROCHLORIDE [Concomitant]
     Dosage: 300 MG, TID
  35. EFFEXOR [Concomitant]
     Dosage: 150 MG, QD
  36. FLUTICASONE PROPIONATE/SALMETEROL [Concomitant]
  37. TRUSOPT [Concomitant]
  38. ALPHAGAN [Concomitant]
  39. LATANOPROST [Concomitant]
  40. ALPRAZOLAM [Concomitant]
     Dosage: 0.5 MG, TID
  41. CALCIUM CARBONATE [Concomitant]
     Dosage: 500 MG, UNK

REACTIONS (42)
  - HEARING IMPAIRED [None]
  - RENAL CYST [None]
  - PROSTATE CANCER [None]
  - AORTIC DILATATION [None]
  - EXPOSED BONE IN JAW [None]
  - INFLAMMATION [None]
  - NEUROPATHY PERIPHERAL [None]
  - INJURY [None]
  - HAEMATOMA [None]
  - GLUCOSE TOLERANCE IMPAIRED [None]
  - FALL [None]
  - AORTIC VALVE SCLEROSIS [None]
  - NEPHROLITHIASIS [None]
  - DIARRHOEA [None]
  - DISABILITY [None]
  - PAIN [None]
  - GLAUCOMA [None]
  - PULMONARY HYPERTENSION [None]
  - ADRENAL INSUFFICIENCY [None]
  - RENAL FAILURE CHRONIC [None]
  - DYSPNOEA [None]
  - HYPERLIPIDAEMIA [None]
  - CARDIAC FAILURE CONGESTIVE [None]
  - AORTIC VALVE INCOMPETENCE [None]
  - BACK PAIN [None]
  - OSTEOARTHRITIS [None]
  - CEREBROVASCULAR ACCIDENT [None]
  - CHRONIC OBSTRUCTIVE PULMONARY DISEASE [None]
  - ANAEMIA [None]
  - DEPRESSION [None]
  - CONTUSION [None]
  - OSTEONECROSIS OF JAW [None]
  - ANXIETY [None]
  - ANHEDONIA [None]
  - METASTASES TO BONE [None]
  - BUNDLE BRANCH BLOCK RIGHT [None]
  - HYPERPLASIA [None]
  - ULCER [None]
  - VENTRICULAR HYPERTROPHY [None]
  - RESPIRATORY DISORDER [None]
  - CORONARY ARTERY DISEASE [None]
  - EMPHYSEMA [None]
